FAERS Safety Report 5164233-1 (Version None)
Quarter: 2006Q4

REPORT INFORMATION
  Report Type: 
  Country: None (occurrence: None)
  Receive Date: 20061204
  Receipt Date: 20061124
  Transmission Date: 20070319
  Serious: Yes (Disabling)
  Sender: FDA-Public Use
  Company Number: FR-ABBOTT-06P-056-0351989-00

PATIENT
  Sex: Male

DRUGS (1)
  1. MICROPAKINE GRANULE [Suspect]
     Indication: EPILEPSY
     Route: 048
     Dates: start: 20051117, end: 20061005

REACTIONS (1)
  - EXTRAPYRAMIDAL DISORDER [None]
